FAERS Safety Report 8348459-1 (Version None)
Quarter: 2012Q2

REPORT INFORMATION
  Report Type: 
  Country: None (occurrence: None)
  Receive Date: 20120509
  Receipt Date: 20120507
  Transmission Date: 20120825
  Serious: Yes (Life-Threatening, Other)
  Sender: FDA-Public Use
  Company Number: US-ABBOTT-11P-163-0872268-00

PATIENT

DRUGS (1)
  1. HUMIRA [Suspect]
     Indication: PRODUCT USED FOR UNKNOWN INDICATION

REACTIONS (11)
  - PUSTULAR PSORIASIS [None]
  - TONSILLAR INFLAMMATION [None]
  - INSOMNIA [None]
  - DERMATITIS EXFOLIATIVE [None]
  - PSORIASIS [None]
  - ACNE [None]
  - SKIN PLAQUE [None]
  - ALOPECIA [None]
  - RASH PUSTULAR [None]
  - ANXIETY [None]
  - MASS [None]
